FAERS Safety Report 9156691 (Version 1)
Quarter: 2013Q1

REPORT INFORMATION
  Report Type: Spontaneous
  Country: US (occurrence: None)
  Receive Date: 20130307
  Receipt Date: 20130307
  Transmission Date: 20140127
  Serious: Yes (Hospitalization)
  Sender: FDA-Public Use
  Company Number: None

PATIENT
  Age: 62 Year
  Sex: Male
  Weight: 116.1 kg

DRUGS (1)
  1. SULFAMETHOXAZOLE/TRIMETHOPRIM [Suspect]
     Indication: SUBCUTANEOUS ABSCESS
     Route: 048
     Dates: start: 20130228, end: 20130302

REACTIONS (3)
  - Erythema multiforme [None]
  - Urticaria [None]
  - Rash [None]
